FAERS Safety Report 4495557-9 (Version None)
Quarter: 2004Q4

REPORT INFORMATION
  Report Type: 
  Country: None (occurrence: None)
  Receive Date: 20041104
  Receipt Date: 20041022
  Transmission Date: 20050328
  Serious: Yes (Other)
  Sender: FDA-Public Use
  Company Number: CA-JNJFOC-20040702516

PATIENT
  Sex: Female
  Weight: 56.7 kg

DRUGS (4)
  1. REMICADE [Suspect]
     Indication: CROHN'S DISEASE
     Dosage: 4 VIALS
     Route: 042
  2. LOSEC [Concomitant]
  3. TEGRETOL [Concomitant]
     Indication: EPILEPSY
  4. MERCAPTOPURINE [Concomitant]

REACTIONS (12)
  - CONJUNCTIVITIS [None]
  - ERYTHEMA [None]
  - FATIGUE [None]
  - FUNGAL INFECTION [None]
  - LUPUS-LIKE SYNDROME [None]
  - PHOTOSENSITIVITY REACTION [None]
  - PRURITUS [None]
  - PYREXIA [None]
  - SKIN PAPILLOMA [None]
  - SWELLING FACE [None]
  - URTICARIA [None]
  - VISUAL ACUITY REDUCED [None]
